FAERS Safety Report 19176294 (Version 3)
Quarter: 2021Q4

REPORT INFORMATION
  Report Type: Spontaneous
  Country: US (occurrence: US)
  Receive Date: 20210423
  Receipt Date: 20211102
  Transmission Date: 20220304
  Serious: No
  Sender: FDA-Public Use
  Company Number: US-SEATTLE GENETICS-2020SGN03347

PATIENT
  Age: 65 Year
  Sex: Female

DRUGS (6)
  1. TUKYSA [Suspect]
     Active Substance: TUCATINIB
     Indication: Breast cancer female
     Dosage: UNK, BID
     Route: 048
  2. TUKYSA [Suspect]
     Active Substance: TUCATINIB
     Dosage: UNK
  3. TUKYSA [Suspect]
     Active Substance: TUCATINIB
     Dosage: UNK
  4. TUKYSA [Suspect]
     Active Substance: TUCATINIB
     Dosage: UNK
  5. TUKYSA [Suspect]
     Active Substance: TUCATINIB
     Dosage: UNK
  6. XELODA [Suspect]
     Active Substance: CAPECITABINE
     Indication: Product used for unknown indication

REACTIONS (19)
  - Muscle spasms [Unknown]
  - Limb injury [Unknown]
  - Onychomadesis [Unknown]
  - Skin discolouration [Unknown]
  - Adverse drug reaction [Unknown]
  - Vitamin D deficiency [Unknown]
  - Depressed mood [Unknown]
  - Hypersomnia [Unknown]
  - Onychoclasis [Recovering/Resolving]
  - Dry skin [Recovering/Resolving]
  - Mobility decreased [Unknown]
  - Joint stiffness [Unknown]
  - Pain in extremity [Unknown]
  - Product dose omission issue [Unknown]
  - Product dose omission issue [Unknown]
  - Depression [Unknown]
  - Fatigue [Unknown]
  - Neuropathy peripheral [Unknown]
  - Arthralgia [Unknown]

NARRATIVE: CASE EVENT DATE: 20210901
